FAERS Safety Report 25159478 (Version 1)
Quarter: 2025Q2

REPORT INFORMATION
  Report Type: Spontaneous
  Country: BE (occurrence: BE)
  Receive Date: 20250404
  Receipt Date: 20250404
  Transmission Date: 20250717
  Serious: Yes (Other)
  Sender: SAMSUNG BIOEPIS
  Company Number: BE-SAMSUNG BIOEPIS-SB-2025-11370

PATIENT
  Age: 17 Year
  Sex: Female

DRUGS (3)
  1. USTEKINUMAB [Suspect]
     Active Substance: USTEKINUMAB
     Indication: Crohn^s disease
  2. USTEKINUMAB [Suspect]
     Active Substance: USTEKINUMAB
  3. UNSPECIFIED INGREDIENT [Suspect]
     Active Substance: UNSPECIFIED INGREDIENT
     Indication: Contraception

REACTIONS (5)
  - Cavernous sinus thrombosis [Recovered/Resolved]
  - Crohn^s disease [Recovered/Resolved]
  - Ophthalmic vein thrombosis [Recovered/Resolved]
  - Myositis [Recovered/Resolved]
  - Loss of therapeutic response [Unknown]
